FAERS Safety Report 25745875 (Version 1)
Quarter: 2025Q3

REPORT INFORMATION
  Report Type: Spontaneous
  Country: US (occurrence: US)
  Receive Date: 20250901
  Receipt Date: 20250901
  Transmission Date: 20251020
  Serious: Yes (Death)
  Sender: HIKMA
  Company Number: US-HIKMA PHARMACEUTICALS-US-H14001-25-09735

PATIENT
  Age: 29 Year
  Sex: Female

DRUGS (7)
  1. AZACITIDINE [Suspect]
     Active Substance: AZACITIDINE
     Indication: Acute myeloid leukaemia
     Dosage: 300 MILLIGRAM, QD, FOR 7 DAYS
     Route: 042
  2. AZACITIDINE [Suspect]
     Active Substance: AZACITIDINE
     Route: 065
  3. AZACITIDINE [Suspect]
     Active Substance: AZACITIDINE
     Route: 065
  4. VENETOCLAX [Suspect]
     Active Substance: VENETOCLAX
     Indication: Acute myeloid leukaemia
     Dosage: 100 MILLIGRAM, QD, FOR 7 DAYS, DOSE  REDUCED DUE TO INTERACTION WITH POSACONAZOLE AND IN THE CONTEXT
     Route: 048
  5. LEVOFLOXACIN [Concomitant]
     Active Substance: LEVOFLOXACIN
     Indication: Acute myeloid leukaemia
     Dosage: 400 MILLIGRAM, QD, (RESTARTED DAY 17)
     Route: 048
  6. POSACONAZOLE [Concomitant]
     Active Substance: POSACONAZOLE
     Indication: Acute myeloid leukaemia
     Dosage: 300 MILLIGRAM, QD (RESTARTED)
     Route: 048
  7. VORICONAZOLE [Concomitant]
     Active Substance: VORICONAZOLE
     Indication: Acute myeloid leukaemia
     Dosage: 100 MILLIGRAM, Q8H, DAY FROM 28 TO DAY 32; DISCHARGE  HOME)
     Route: 048

REACTIONS (1)
  - Anaemia [Fatal]
